FAERS Safety Report 9355201 (Version 1)
Quarter: 2013Q2

REPORT INFORMATION
  Report Type: Spontaneous
  Country: US (occurrence: US)
  Receive Date: 20130619
  Receipt Date: 20130619
  Transmission Date: 20140414
  Serious: Yes (Other)
  Sender: FDA-Public Use
  Company Number: PHEH2013US012989

PATIENT
  Sex: Female

DRUGS (3)
  1. DIOVAN HCT [Suspect]
     Dosage: 80/12.5 MG, QD
     Route: 048
     Dates: start: 2007
  2. PREDNISOLONE [Concomitant]
     Dosage: UNK UKN, UNK
  3. DORZOLAMIDE [Concomitant]
     Dosage: UNK UKN, UNK

REACTIONS (1)
  - Conjunctivitis [Unknown]
